FAERS Safety Report 5304799-1 (Version None)
Quarter: 2007Q2

REPORT INFORMATION
  Report Type: 
  Country: None (occurrence: None)
  Receive Date: 20070423
  Receipt Date: 20070410
  Transmission Date: 20071010
  Serious: Yes (Hospitalization)
  Sender: FDA-Public Use
  Company Number: US-ELI_LILLY_AND_COMPANY-US200704002150

PATIENT
  Sex: Female

DRUGS (2)
  1. CYMBALTA [Suspect]
     Dosage: UNK MG, UNK
  2. COUMADIN [Concomitant]

REACTIONS (4)
  - BRONCHITIS [None]
  - DEHYDRATION [None]
  - DRUG INTERACTION [None]
  - PNEUMONIA [None]
